FAERS Safety Report 9206832 (Version 2)
Quarter: 2013Q2

REPORT INFORMATION
  Report Type: Spontaneous
  Country: FR (occurrence: FR)
  Receive Date: 20130403
  Receipt Date: 20130605
  Transmission Date: 20140414
  Serious: Yes (Life-Threatening, Other)
  Sender: FDA-Public Use
  Company Number: FR-009507513-1303FRA012423

PATIENT
  Age: 44 Year
  Sex: Female
  Weight: 55 kg

DRUGS (8)
  1. VARNOLINE [Suspect]
     Indication: ORAL CONTRACEPTION
     Dosage: UNK
     Route: 048
     Dates: end: 20121015
  2. SERTRALINE HYDROCHLORIDE [Concomitant]
  3. SERESTA [Concomitant]
  4. RISPERIDONE [Concomitant]
  5. ZOPICLONE [Concomitant]
  6. VOLTAREN [Concomitant]
  7. ANTADYS [Concomitant]
  8. ACETAMINOPHEN [Concomitant]
     Indication: HEADACHE

REACTIONS (2)
  - Carotid artery dissection [Recovering/Resolving]
  - Ischaemic stroke [Recovered/Resolved with Sequelae]
